FAERS Safety Report 20905523 (Version 2)
Quarter: 2025Q1

REPORT INFORMATION
  Report Type: Report from Study
  Country: US (occurrence: US)
  Receive Date: 20220602
  Receipt Date: 20250305
  Transmission Date: 20250409
  Serious: Yes (Hospitalization)
  Sender: KYOWA
  Company Number: US-KYOWAKIRIN-2022BKK008004

PATIENT

DRUGS (3)
  1. BUROSUMAB [Suspect]
     Active Substance: BUROSUMAB
     Indication: Hereditary hypophosphataemic rickets
     Dosage: 60 MG, 1X/4 WEEKS (EVERY 4 WEEKS)
     Route: 058
     Dates: start: 201906
  2. BUROSUMAB [Suspect]
     Active Substance: BUROSUMAB
     Indication: Hereditary hypophosphataemic rickets
     Dosage: 20 MG, 1X/4 WEEKS  (EVERY 4 WEEKS)
     Route: 058
     Dates: start: 20190619
  3. BUROSUMAB [Suspect]
     Active Substance: BUROSUMAB
     Indication: Hereditary hypophosphataemic rickets
     Dosage: UNK, 1X/4 WEEKS
     Route: 058

REACTIONS (3)
  - Road traffic accident [Unknown]
  - Neck pain [Unknown]
  - Blood phosphorus increased [Unknown]

NARRATIVE: CASE EVENT DATE: 20250201
